FAERS Safety Report 7894145-1 (Version None)
Quarter: 2011Q4

REPORT INFORMATION
  Report Type: 
  Country: None (occurrence: None)
  Receive Date: 20111104
  Receipt Date: 20111031
  Transmission Date: 20120403
  Serious: Yes (Other)
  Sender: FDA-Public Use
  Company Number: US-PFIZER INC-2011226566

PATIENT
  Age: 83 Year
  Sex: Female

DRUGS (3)
  1. PREMARIN [Suspect]
     Indication: OFF LABEL USE
     Dosage: UNK
     Dates: end: 20110101
  2. PREMARIN [Suspect]
     Indication: CARDIAC DISORDER
  3. PREMARIN [Suspect]
     Indication: BONE DISORDER

REACTIONS (1)
  - BREAST CANCER [None]
